FAERS Safety Report 18272795 (Version 1)
Quarter: 2020Q3

REPORT INFORMATION
  Report Type: Spontaneous
  Country: GB (occurrence: GB)
  Receive Date: 20200916
  Receipt Date: 20200916
  Transmission Date: 20201103
  Serious: Yes (Other)
  Sender: FDA-Public Use
  Company Number: GB-MYLANLABS-2020M1078151

PATIENT
  Age: 40 Year
  Sex: Female

DRUGS (1)
  1. TAMOXIFEN [Suspect]
     Active Substance: TAMOXIFEN
     Indication: BREAST CANCER
     Dosage: 20 MG(2YEAR BREAK FROM TAMOXIFEN WHILST HAVING A BABY, HAS RECENTLY RESTARTED, SYMPTOMS RETURNED)
     Route: 048
     Dates: start: 201502

REACTIONS (2)
  - Hot flush [Recovered/Resolved]
  - Sleep disorder due to general medical condition, insomnia type [Recovered/Resolved]

NARRATIVE: CASE EVENT DATE: 201505
